FAERS Safety Report 4682778-5 (Version None)
Quarter: 2005Q2

REPORT INFORMATION
  Report Type: 
  Country: None (occurrence: None)
  Receive Date: 20050531
  Receipt Date: 20041028
  Transmission Date: 20051028
  Serious: Yes (Other)
  Sender: FDA-Public Use
  Company Number: 200418375US

PATIENT
  Age: 70 Year
  Sex: Female

DRUGS (8)
  1. LOVENOX [Suspect]
     Indication: HIP ARTHROPLASTY
     Dosage: 30 MG Q12H
     Dates: start: 20040707, end: 20040712
  2. LOVENOX [Suspect]
     Indication: PROPHYLAXIS
     Dosage: 30 MG Q12H
     Dates: start: 20040707, end: 20040712
  3. LOVENOX [Suspect]
     Indication: HIP ARTHROPLASTY
     Dosage: 15 MG QD
     Dates: start: 20040712, end: 20040801
  4. LOVENOX [Suspect]
     Indication: PROPHYLAXIS
     Dosage: 15 MG QD
     Dates: start: 20040712, end: 20040801
  5. VITAMIN B-12 [Concomitant]
  6. ASCORBIC ACID [Concomitant]
  7. GLUCOSAMINE [Concomitant]
  8. NEURONTIN [Concomitant]

REACTIONS (7)
  - BURNING SENSATION [None]
  - HAEMATOMA [None]
  - HAEMOGLOBIN DECREASED [None]
  - HYPOAESTHESIA [None]
  - NERVE COMPRESSION [None]
  - NEURALGIA [None]
  - THROMBOSIS [None]
